FAERS Safety Report 19515756 (Version 2)
Quarter: 2021Q3

REPORT INFORMATION
  Report Type: Spontaneous
  Country: US (occurrence: US)
  Receive Date: 20210709
  Receipt Date: 20210709
  Transmission Date: 20211014
  Serious: No
  Sender: FDA-Public Use
  Company Number: US-ASTELLAS-2020US026276

PATIENT
  Age: 91 Year
  Sex: Female

DRUGS (3)
  1. MYRBETRIQ [Suspect]
     Active Substance: MIRABEGRON
     Indication: BLADDER SPASM
     Route: 065
     Dates: start: 202010
  2. MYRBETRIQ [Suspect]
     Active Substance: MIRABEGRON
     Indication: BLADDER SPASM
     Dosage: 25 MG (EVERY NIGHT BEFORE BEDTIME), ONCE DAILY
     Route: 065
  3. MYRBETRIQ [Suspect]
     Active Substance: MIRABEGRON
     Dosage: 50 MG, ONCE DAILY, AT NIGHT, SEVERAL MONTHS AGO
     Route: 065

REACTIONS (7)
  - Drug ineffective for unapproved indication [Unknown]
  - Infection [Unknown]
  - Insomnia [Unknown]
  - Dysuria [Unknown]
  - Urinary hesitation [Unknown]
  - Product use in unapproved indication [Unknown]
  - Blood sodium abnormal [Unknown]
